FAERS Safety Report 9615027 (Version 2)
Quarter: 2013Q4

REPORT INFORMATION
  Report Type: Spontaneous
  Country: US (occurrence: US)
  Receive Date: 20131011
  Receipt Date: 20131011
  Transmission Date: 20140711
  Serious: No
  Sender: FDA-Public Use
  Company Number: US-PURDUE-USA-2013-0097340

PATIENT
  Age: 63 Year
  Sex: Female

DRUGS (1)
  1. BUTRANS [Suspect]
     Indication: NEURALGIA
     Dosage: 10 MCG, WEEKLY
     Route: 062
     Dates: start: 201210

REACTIONS (7)
  - Application site discolouration [Not Recovered/Not Resolved]
  - Application site burn [Unknown]
  - Application site rash [Not Recovered/Not Resolved]
  - Application site pruritus [Not Recovered/Not Resolved]
  - Application site pain [Unknown]
  - Application site exfoliation [Unknown]
  - Amnesia [Unknown]
